FAERS Safety Report 5102143-6 (Version None)
Quarter: 2006Q3

REPORT INFORMATION
  Report Type: 
  Country: None (occurrence: None)
  Receive Date: 20060912
  Receipt Date: 20060830
  Transmission Date: 20061208
  Serious: Yes (Other)
  Sender: FDA-Public Use
  Company Number: US-KINGPHARMUSA00001-K200601108

PATIENT
  Age: 50 Year
  Sex: Female

DRUGS (1)
  1. INTAL [Suspect]
     Indication: ASTHMA
     Dosage: 5 MG, UNK
     Dates: start: 19931013, end: 20051209

REACTIONS (5)
  - ARTHRALGIA [None]
  - FACIAL PAIN [None]
  - MALAISE [None]
  - MYALGIA [None]
  - PAROTITIS [None]
